FAERS Safety Report 9246186 (Version 6)
Quarter: 2013Q3

REPORT INFORMATION
  Report Type: Report from Study
  Country: US (occurrence: US)
  Receive Date: 20130422
  Receipt Date: 20130912
  Transmission Date: 20140515
  Serious: Yes (Other)
  Sender: FDA-Public Use
  Company Number: US-US-EMD SERONO, INC.-7205812

PATIENT
  Sex: Female

DRUGS (5)
  1. REBIF [Suspect]
     Indication: MULTIPLE SCLEROSIS
     Route: 058
     Dates: start: 20130104, end: 20130416
  2. REBIF [Suspect]
     Route: 058
     Dates: start: 20130514
  3. NEURONTIN [Concomitant]
     Indication: PRODUCT USED FOR UNKNOWN INDICATION
  4. AMITRIPTYLINE [Concomitant]
     Indication: PRODUCT USED FOR UNKNOWN INDICATION
  5. LORTAB                             /00607101/ [Concomitant]
     Indication: PAIN

REACTIONS (4)
  - Intervertebral disc protrusion [Recovering/Resolving]
  - Benign intracranial hypertension [Unknown]
  - Multiple sclerosis [Not Recovered/Not Resolved]
  - Injection site bruising [Unknown]
